FAERS Safety Report 16070690 (Version 1)
Quarter: 2019Q2

REPORT INFORMATION
  Report Type: Spontaneous
  Country: US (occurrence: US)
  Receive Date: 20190314
  Receipt Date: 20190314
  Transmission Date: 20190711
  Serious: Yes (Hospitalization)
  Sender: FDA-Public Use
  Company Number: None

PATIENT
  Age: 81 Year
  Sex: Male
  Weight: 76.5 kg

DRUGS (1)
  1. BRILINTA [Suspect]
     Active Substance: TICAGRELOR

REACTIONS (4)
  - Drug hypersensitivity [None]
  - Haemoglobin abnormal [None]
  - Renal failure [None]
  - Haemorrhage [None]

NARRATIVE: CASE EVENT DATE: 20170111
